FAERS Safety Report 5419657-1 (Version None)
Quarter: 2007Q3

REPORT INFORMATION
  Report Type: 
  Country: None (occurrence: None)
  Receive Date: 20070820
  Receipt Date: 20061205
  Transmission Date: 20080115
  Serious: Yes (Hospitalization)
  Sender: FDA-Public Use
  Company Number: IT-MERCK-0612ITA00006

PATIENT
  Age: 43 Year
  Sex: Female

DRUGS (2)
  1. MAXALT-MLT [Suspect]
     Indication: HEADACHE
     Route: 048
     Dates: start: 20061127, end: 20061130
  2. NIMESULIDE [Concomitant]
     Route: 048
     Dates: start: 20061127, end: 20061130

REACTIONS (3)
  - HYPERTENSIVE CRISIS [None]
  - PARAESTHESIA [None]
  - VOMITING [None]
